FAERS Safety Report 4424765-8 (Version None)
Quarter: 2004Q3

REPORT INFORMATION
  Report Type: 
  Country: None (occurrence: None)
  Receive Date: 20040805
  Receipt Date: 20040723
  Transmission Date: 20050211
  Serious: Yes (Hospitalization)
  Sender: FDA-Public Use
  Company Number: 6009774

PATIENT
  Age: 56 Year
  Sex: Female

DRUGS (5)
  1. SOPROL                  (BISOPROLOL FUMARATE) [Suspect]
     Dosage: 5 MG (5MG, 1 IN 1 D) ORAL
     Route: 048
     Dates: end: 20040414
  2. LEXOMIL                  (BROMAZEPAM) [Suspect]
     Dosage: ORAL
     Route: 048
  3. CEFUROXIME AXETIL [Suspect]
     Dosage: ORAL
     Route: 048
     Dates: start: 20020101
  4. AMBROXOL                     (AMBROXOL) [Concomitant]
  5. SOLUPRED               (PREDNISOLONE SODIUM SULFOBENZOATE) [Concomitant]

REACTIONS (2)
  - APLASTIC ANAEMIA [None]
  - BONE MARROW DEPRESSION [None]
